FAERS Safety Report 8228549 (Version 10)
Quarter: 2014Q1

REPORT INFORMATION
  Report Type: Report from Study
  Country: US (occurrence: US)
  Receive Date: 20111104
  Receipt Date: 20140207
  Transmission Date: 20141002
  Serious: Yes (Hospitalization)
  Sender: FDA-Public Use
  Company Number: US-JNJFOC-20111012186

PATIENT
  Age: 16 Year
  Sex: Male
  Weight: 53.5 kg

DRUGS (3)
  1. INFLIXIMAB, RECOMBINANT [Suspect]
     Indication: CROHN^S DISEASE
     Route: 042
     Dates: start: 20071101, end: 20080730
  2. PREDNISONE [Concomitant]
     Route: 065
  3. 6-MERCAPTOPURINE [Concomitant]
     Route: 065

REACTIONS (4)
  - Crohn^s disease [Recovered/Resolved]
  - Abdominal abscess [Recovered/Resolved with Sequelae]
  - Enterovesical fistula [Recovered/Resolved]
  - Intestinal perforation [Recovered/Resolved]
